FAERS Safety Report 6730175-0 (Version None)
Quarter: 2010Q2

REPORT INFORMATION
  Report Type: 
  Country: None (occurrence: None)
  Receive Date: 20100518
  Receipt Date: 20100504
  Transmission Date: 20101027
  Serious: Yes (Other)
  Sender: FDA-Public Use
  Company Number: GB-CELGENEUS-167-20785-10050597

PATIENT

DRUGS (4)
  1. THALIDOMIDE [Suspect]
     Dosage: 50MG OR 100MG
     Route: 048
  2. THALIDOMIDE [Suspect]
     Route: 048
  3. CYCLOPHOSPHAMIDE [Suspect]
     Route: 048
  4. DEXAMETHASONE [Suspect]
     Dosage: 20M,G OR 40MG
     Route: 048

REACTIONS (8)
  - CARDIAC FAILURE [None]
  - CONSTIPATION [None]
  - FATIGUE [None]
  - INFECTION [None]
  - NEUROPATHY PERIPHERAL [None]
  - NEUTROPENIA [None]
  - RENAL IMPAIRMENT [None]
  - SOMNOLENCE [None]
